FAERS Safety Report 11469072 (Version 1)
Quarter: 2015Q3

REPORT INFORMATION
  Report Type: Spontaneous
  Country: US (occurrence: US)
  Receive Date: 20150908
  Receipt Date: 20150908
  Transmission Date: 20151125
  Serious: No
  Sender: FDA-Public Use
  Company Number: US-GLAXOSMITHKLINE-US2015GSK117484

PATIENT
  Age: 52 Year
  Sex: Female

DRUGS (4)
  1. ONDANSETRON TABLET [Suspect]
     Active Substance: ONDANSETRON
     Indication: VOMITING
     Route: 048
  2. MOVANTIK [Suspect]
     Active Substance: NALOXEGOL OXALATE
     Indication: PRODUCT USED FOR UNKNOWN INDICATION
  3. DILAUDID [Concomitant]
     Active Substance: HYDROMORPHONE HYDROCHLORIDE
  4. ONDANSETRON DISINTEGRATING TABLET [Suspect]
     Active Substance: ONDANSETRON
     Indication: VOMITING
     Dosage: UNK UNK, PRN
     Route: 060
     Dates: start: 20150728

REACTIONS (9)
  - Underdose [Unknown]
  - Erythema [Not Recovered/Not Resolved]
  - Vomiting [Unknown]
  - Amnesia [Not Recovered/Not Resolved]
  - Product formulation issue [Unknown]
  - Confusional state [Not Recovered/Not Resolved]
  - Pyrexia [Unknown]
  - Procedural complication [Unknown]
  - Oesophagitis [Unknown]

NARRATIVE: CASE EVENT DATE: 20150728
